FAERS Safety Report 11048887 (Version 1)
Quarter: 2015Q2

REPORT INFORMATION
  Report Type: Spontaneous
  Country: IS (occurrence: IS)
  Receive Date: 20150420
  Receipt Date: 20150420
  Transmission Date: 20150821
  Serious: Yes (Other)
  Sender: FDA-Public Use
  Company Number: IS-ASTELLAS-2015US002411

PATIENT
  Sex: Female

DRUGS (1)
  1. BETMIGA [Suspect]
     Active Substance: MIRABEGRON
     Indication: PRODUCT USED FOR UNKNOWN INDICATION
     Dosage: 25-50 MG, UNKNOWN FREQ.
     Route: 065
     Dates: start: 20131023

REACTIONS (1)
  - Vasculitis [Unknown]

NARRATIVE: CASE EVENT DATE: 201409
